FAERS Safety Report 5855936-1 (Version None)
Quarter: 2008Q3

REPORT INFORMATION
  Report Type: 
  Country: None (occurrence: None)
  Receive Date: 20080825
  Receipt Date: 20080818
  Transmission Date: 20090109
  Serious: Yes (Other)
  Sender: FDA-Public Use
  Company Number: PHBS2008IT05446

PATIENT
  Age: 72 Year
  Sex: Female

DRUGS (2)
  1. PAMIDRONATE DISODIUM [Suspect]
     Indication: BREAST CANCER
     Dosage: 60 MG, QW2
  2. PAMIDRONATE DISODIUM [Suspect]
     Dosage: 60 MG, QW

REACTIONS (3)
  - MOUTH HAEMORRHAGE [None]
  - OSTEOMYELITIS [None]
  - OSTEONECROSIS [None]
